FAERS Safety Report 26043048 (Version 1)
Quarter: 2025Q4

REPORT INFORMATION
  Report Type: Spontaneous
  Country: US (occurrence: US)
  Receive Date: 20251113
  Receipt Date: 20251113
  Transmission Date: 20260118
  Serious: No
  Sender: ANI
  Company Number: US-ANIPHARMA-2025-US-047582

PATIENT
  Sex: Male
  Weight: 86.18 kg

DRUGS (9)
  1. KRYSTEXXA [Concomitant]
     Active Substance: PEGLOTICASE
  2. EMERGEN-C EFFPOWDPKT [Concomitant]
  3. VITAMIN D [Concomitant]
     Active Substance: VITAMIN D NOS
  4. VITAMIN B12 [Concomitant]
     Active Substance: CYANOCOBALAMIN
  5. PREDNISONE [Concomitant]
     Active Substance: PREDNISONE
  6. COLCHICINE [Concomitant]
     Active Substance: COLCHICINE
  7. IBUPROFEN [Concomitant]
     Active Substance: IBUPROFEN
  8. TRAMADOL HCL [Concomitant]
     Active Substance: TRAMADOL HYDROCHLORIDE
  9. CORTICOTROPIN [Suspect]
     Active Substance: CORTICOTROPIN
     Indication: Gout
     Dosage: 1 PREFILLED SYRINGE INJECT UNDER THE SKIN TWICE A WEEK
     Route: 058

REACTIONS (1)
  - Fatigue [Unknown]
